FAERS Safety Report 18221617 (Version 1)
Quarter: 2020Q3

REPORT INFORMATION
  Report Type: Spontaneous
  Country: US (occurrence: US)
  Receive Date: 20200901
  Receipt Date: 20200901
  Transmission Date: 20201103
  Serious: Yes (Hospitalization)
  Sender: FDA-Public Use
  Company Number: None

PATIENT
  Age: 64 Year
  Sex: Female

DRUGS (30)
  1. FAMOTIDINE. [Concomitant]
     Active Substance: FAMOTIDINE
  2. JANUVIA [Concomitant]
     Active Substance: SITAGLIPTIN PHOSPHATE
  3. POT CL MICRO [Concomitant]
  4. DOXYCYCL HYC [Concomitant]
  5. ESBRIET [Suspect]
     Active Substance: PIRFENIDONE
     Indication: IDIOPATHIC PULMONARY FIBROSIS
     Route: 048
     Dates: start: 20181130
  6. AZITHROMYCIN ANHYDROUS. [Concomitant]
     Active Substance: AZITHROMYCIN ANHYDROUS
  7. CETIRIZINE [Concomitant]
     Active Substance: CETIRIZINE HYDROCHLORIDE
  8. GABAPENTIN. [Concomitant]
     Active Substance: GABAPENTIN
  9. HYD POL/CPM [Concomitant]
  10. IPRATROPIUM [Concomitant]
     Active Substance: IPRATROPIUM
  11. DOFETILIDE. [Concomitant]
     Active Substance: DOFETILIDE
  12. INSULIN LISP [Concomitant]
  13. PREDNISONE. [Concomitant]
     Active Substance: PREDNISONE
  14. AUG BETAMET [Concomitant]
  15. ENTRESTO [Concomitant]
     Active Substance: SACUBITRIL\VALSARTAN
  16. ISOSORB DIN [Concomitant]
  17. BENZONATATE. [Concomitant]
     Active Substance: BENZONATATE
  18. NYSTATIN. [Concomitant]
     Active Substance: NYSTATIN
  19. OMEPRAZOLE. [Concomitant]
     Active Substance: OMEPRAZOLE
  20. SMZ/TMP DS [Concomitant]
     Active Substance: SULFAMETHOXAZOLE\TRIMETHOPRIM
  21. CLOTRIM/BETA [Concomitant]
  22. FUROSEMIDE. [Concomitant]
     Active Substance: FUROSEMIDE
  23. LEVOCETIRIZI [Concomitant]
  24. METOPROL SUC [Concomitant]
  25. NYSTOP [Concomitant]
     Active Substance: NYSTATIN
  26. SMZ/TMP [Concomitant]
     Active Substance: SULFAMETHOXAZOLE\TRIMETHOPRIM
  27. SPIRONOLACT [Concomitant]
     Active Substance: SPIRONOLACTONE
  28. TRAMADOL HCL [Concomitant]
     Active Substance: TRAMADOL HYDROCHLORIDE
  29. AMOX/K CLAV [Concomitant]
     Active Substance: AMOXICILLIN\CLAVULANATE POTASSIUM
  30. CEFDINIR. [Concomitant]
     Active Substance: CEFDINIR

REACTIONS (1)
  - Idiopathic pulmonary fibrosis [None]

NARRATIVE: CASE EVENT DATE: 20200709
